FAERS Safety Report 11498048 (Version 2)
Quarter: 2016Q4

REPORT INFORMATION
  Report Type: Spontaneous
  Country: US (occurrence: US)
  Receive Date: 20150911
  Receipt Date: 20161004
  Transmission Date: 20170206
  Serious: Yes (Death, Congenital Anomaly, Other)
  Sender: FDA-Public Use
  Company Number: US-APOTEX-2015AP012527

PATIENT
  Age: 0 Day
  Sex: Male
  Weight: 3 kg

DRUGS (1)
  1. PAXIL [Suspect]
     Active Substance: PAROXETINE HYDROCHLORIDE
     Indication: DEPRESSION
     Dosage: UNK
     Route: 064
     Dates: end: 199906

REACTIONS (10)
  - Cardiopulmonary failure [Fatal]
  - Intraventricular haemorrhage [Unknown]
  - Cardiac failure [Fatal]
  - Atrial septal defect [Unknown]
  - Patent ductus arteriosus [Unknown]
  - Congenital tricuspid valve incompetence [Unknown]
  - Congenital mitral valve incompetence [Unknown]
  - Foetal exposure during pregnancy [Unknown]
  - Transposition of the great vessels [Fatal]
  - Persistent foetal circulation [Fatal]

NARRATIVE: CASE EVENT DATE: 19991202
